FAERS Safety Report 24060613 (Version 6)
Quarter: 2025Q2

REPORT INFORMATION
  Report Type: Spontaneous
  Country: GB (occurrence: GB)
  Receive Date: 20240708
  Receipt Date: 20250408
  Transmission Date: 20250717
  Serious: Yes (Hospitalization, Other)
  Sender: MYLAN
  Company Number: GB-MYLANLABS-2024M1061925

PATIENT
  Sex: Female

DRUGS (2)
  1. CLOZARIL [Suspect]
     Active Substance: CLOZAPINE
     Indication: Schizophrenia
     Dates: start: 20110215, end: 20240625
  2. CLOZARIL [Suspect]
     Active Substance: CLOZAPINE

REACTIONS (11)
  - Sepsis [Unknown]
  - Thrombocytopenia [Recovered/Resolved]
  - Blood creatinine increased [Unknown]
  - Malaise [Unknown]
  - High density lipoprotein decreased [Unknown]
  - Feeding disorder [Unknown]
  - Anaemia [Not Recovered/Not Resolved]
  - Neutrophil count decreased [Recovered/Resolved]
  - Haematocrit decreased [Unknown]
  - Red blood cell count decreased [Unknown]
  - Blood alkaline phosphatase increased [Unknown]

NARRATIVE: CASE EVENT DATE: 20250318
